FAERS Safety Report 6639361-1 (Version None)
Quarter: 2010Q1

REPORT INFORMATION
  Report Type: 
  Country: None (occurrence: None)
  Receive Date: 20100318
  Receipt Date: 20100308
  Transmission Date: 20100710
  Serious: Yes (Other)
  Sender: FDA-Public Use
  Company Number: GB-BIOGENIDEC-2010BI002009

PATIENT
  Sex: Female

DRUGS (4)
  1. TYSABRI [Suspect]
     Indication: DRUG USE FOR UNKNOWN INDICATION
  2. EPILIM [Concomitant]
     Route: 048
     Dates: start: 20090601
  3. ASPIRIN [Concomitant]
     Route: 048
     Dates: start: 20050101
  4. PARACETAMOL [Concomitant]
     Route: 048

REACTIONS (1)
  - PULMONARY TUBERCULOSIS [None]
